FAERS Safety Report 17319548 (Version 1)
Quarter: 2020Q1

REPORT INFORMATION
  Report Type: Report from Study
  Country: None (occurrence: US)
  Receive Date: 20200125
  Receipt Date: 20200125
  Transmission Date: 20200409
  Serious: Yes (Hospitalization)
  Sender: FDA-Public Use
  Company Number: US-ABBVIE-20K-163-3244539-00

PATIENT
  Sex: Male

DRUGS (1)
  1. VENCLEXTA [Suspect]
     Active Substance: VENETOCLAX
     Indication: CHRONIC MYELOMONOCYTIC LEUKAEMIA
     Dosage: WITH MEAL AND WATER
     Route: 048

REACTIONS (3)
  - Headache [Unknown]
  - Malignant neoplasm of spinal cord [Unknown]
  - Off label use [Unknown]
